FAERS Safety Report 4800229-4 (Version None)
Quarter: 2005Q4

REPORT INFORMATION
  Report Type: 
  Country: None (occurrence: None)
  Receive Date: 20051017
  Receipt Date: 20050214
  Transmission Date: 20060501
  Serious: No
  Sender: FDA-Public Use
  Company Number: US-GLAXOSMITHKLINE-A0546348A

PATIENT
  Age: 16 Month
  Sex: Male

DRUGS (3)
  1. CEFTIN [Suspect]
     Indication: EAR INFECTION
     Dosage: 4ML TWICE PER DAY
     Route: 048
  2. AMOXICILLIN [Suspect]
     Indication: EAR INFECTION
     Route: 065
  3. AUGMENTIN '125' [Suspect]
     Indication: EAR INFECTION
     Route: 048

REACTIONS (3)
  - DRUG INTOLERANCE [None]
  - ORAL DISCOMFORT [None]
  - VOMITING [None]
